FAERS Safety Report 22152390 (Version 2)
Quarter: 2023Q2

REPORT INFORMATION
  Report Type: Other
  Country: GB (occurrence: GB)
  Receive Date: 20230329
  Receipt Date: 20230413
  Transmission Date: 20230722
  Serious: Yes (Other)
  Sender: FDA-Public Use
  Company Number: None

PATIENT

DRUGS (5)
  1. ATOMOXETINE [Suspect]
     Active Substance: ATOMOXETINE
     Indication: Product used for unknown indication
     Dosage: UNK
     Route: 065
     Dates: start: 20220209
  2. ATOMOXETINE [Suspect]
     Active Substance: ATOMOXETINE
     Dosage: 10 MILLIGRAM, OD
     Route: 048
     Dates: start: 20221230
  3. CILIQUE [Concomitant]
     Indication: Product used for unknown indication
     Dosage: 1 DOSAGE FORM, OD (FOR 21 DAYS; SUBSEQUENT COURSE...  )
     Route: 065
     Dates: start: 20220209
  4. ETHINYL ESTRADIOL [Concomitant]
     Active Substance: ETHINYL ESTRADIOL
     Indication: Product used for unknown indication
     Dosage: UNK
     Route: 065
  5. NORGESTIMATE [Concomitant]
     Active Substance: NORGESTIMATE
     Indication: Product used for unknown indication
     Dosage: UNK
     Route: 065

REACTIONS (1)
  - Petechiae [Unknown]
